FAERS Safety Report 11047970 (Version 3)
Quarter: 2015Q2

REPORT INFORMATION
  Report Type: Spontaneous
  Country: US (occurrence: US)
  Receive Date: 20150420
  Receipt Date: 20150612
  Transmission Date: 20150821
  Serious: Yes (Other)
  Sender: FDA-Public Use
  Company Number: US-BAYER-2015-122676

PATIENT
  Age: 74 Year
  Sex: Male
  Weight: 84 kg

DRUGS (5)
  1. ONE A DAY MEN^S HEALTH FORMULA [Concomitant]
     Active Substance: VITAMINS
     Dosage: 1 DF, UNK
     Route: 048
  2. ATENOLOL. [Concomitant]
     Active Substance: ATENOLOL
  3. TRUBIOTICS [Suspect]
     Active Substance: BIFIDOBACTERIUM LONGUM\LACTOBACILLUS ACIDOPHILUS
     Dosage: 1 DF, QD WITH FOOD
     Route: 048
     Dates: start: 20150315, end: 20150318
  4. ONE A DAY MEN^S 50+ HEALTHY ADVANTAGE [Suspect]
     Active Substance: VITAMINS
     Dosage: 1 DF, UNK
     Route: 048
  5. BAYER LOW DOSE [Suspect]
     Active Substance: ASPIRIN
     Indication: PRODUCT USED FOR UNKNOWN INDICATION
     Dosage: 1 DF, UNK
     Route: 048

REACTIONS (5)
  - Diarrhoea [Not Recovered/Not Resolved]
  - Product odour abnormal [Unknown]
  - Haemorrhagic diathesis [Recovered/Resolved]
  - Epistaxis [Recovered/Resolved]
  - Wrong technique in drug usage process [Unknown]

NARRATIVE: CASE EVENT DATE: 20150317
